FAERS Safety Report 12701858 (Version 1)
Quarter: 2016Q3

REPORT INFORMATION
  Report Type: Spontaneous
  Country: US (occurrence: None)
  Receive Date: 20160830
  Receipt Date: 20160830
  Transmission Date: 20161109
  Serious: Yes (Other)
  Sender: FDA-Public Use
  Company Number: None

PATIENT
  Age: 30 Year
  Sex: Male

DRUGS (1)
  1. SULFAMETHOXAZOLE-TRIMETHOPRIM [Suspect]
     Active Substance: SULFAMETHOXAZOLE\TRIMETHOPRIM
     Indication: SKIN LESION
     Dosage: 800MG/160MG
     Route: 048
     Dates: start: 20160728, end: 20160811

REACTIONS (2)
  - Penis disorder [None]
  - Drug eruption [None]

NARRATIVE: CASE EVENT DATE: 20160808
